FAERS Safety Report 17768101 (Version 3)
Quarter: 2020Q3

REPORT INFORMATION
  Report Type: Spontaneous
  Country: US (occurrence: US)
  Receive Date: 20200511
  Receipt Date: 20200805
  Transmission Date: 20201102
  Serious: Yes (Hospitalization, Other)
  Sender: FDA-Public Use
  Company Number: US-AKCEA THERAPEUTICS-2020IS001177

PATIENT
  Age: 69 Year
  Sex: Female

DRUGS (18)
  1. VALCYTE [Concomitant]
     Active Substance: VALGANCICLOVIR HYDROCHLORIDE
     Route: 065
  2. PROTONIX [Concomitant]
     Active Substance: PANTOPRAZOLE SODIUM
     Route: 065
  3. LINZESS [Concomitant]
     Active Substance: LINACLOTIDE
     Route: 065
  4. FOLIC ACID. [Concomitant]
     Active Substance: FOLIC ACID
     Route: 065
  5. MIRALAX [Concomitant]
     Active Substance: POLYETHYLENE GLYCOL 3350
     Route: 065
  6. CALCIUM CARBONATE. [Concomitant]
     Active Substance: CALCIUM CARBONATE
     Route: 065
  7. FOSAMAX [Concomitant]
     Active Substance: ALENDRONATE SODIUM
     Route: 065
  8. DIFLUNISAL. [Concomitant]
     Active Substance: DIFLUNISAL
     Route: 065
  9. ISSD (INTEGRATED SYRINGE SAFETY DEVICE) [Suspect]
     Active Substance: DEVICE
  10. ZOFRAN [Concomitant]
     Active Substance: ONDANSETRON HYDROCHLORIDE
     Route: 065
  11. CELLCEPT [Concomitant]
     Active Substance: MYCOPHENOLATE MOFETIL\MYCOPHENOLATE MOFETIL HYDROCHLORIDE
     Route: 065
  12. MULTIVITAMIN [Concomitant]
     Active Substance: VITAMINS
  13. TACROLIMUS. [Concomitant]
     Active Substance: TACROLIMUS
     Route: 065
  14. TEGSEDI [Suspect]
     Active Substance: INOTERSEN SODIUM
     Indication: HEREDITARY NEUROPATHIC AMYLOIDOSIS
     Route: 058
  15. XANAX [Concomitant]
     Active Substance: ALPRAZOLAM
     Route: 065
  16. ASPIRIN EC [Concomitant]
     Active Substance: ASPIRIN
     Route: 065
  17. MAG?OX [Concomitant]
     Active Substance: MAGNESIUM OXIDE
     Route: 065
  18. NIACINAMIDE [Concomitant]
     Active Substance: NIACINAMIDE
     Route: 065

REACTIONS (6)
  - Cardiac pacemaker insertion [Unknown]
  - Hospitalisation [Unknown]
  - Arrhythmia [Unknown]
  - Platelet count decreased [Unknown]
  - Medical procedure [Unknown]
  - Injection site bruising [Unknown]

NARRATIVE: CASE EVENT DATE: 202003
